FAERS Safety Report 6142123-5 (Version None)
Quarter: 2009Q2

REPORT INFORMATION
  Report Type: 
  Country: None (occurrence: None)
  Receive Date: 20090402
  Receipt Date: 20090326
  Transmission Date: 20091009
  Serious: Yes (Hospitalization, Other)
  Sender: FDA-Public Use
  Company Number: US-ASTRAZENECA-2009UW03901

PATIENT
  Sex: Female

DRUGS (38)
  1. CRESTOR [Suspect]
     Route: 048
  2. PLAVIX [Concomitant]
     Dosage: TABS
  3. ZETIA [Concomitant]
     Dosage: TABS
     Route: 048
  4. NEXIUM [Concomitant]
     Route: 048
  5. ASPIRIN [Concomitant]
     Dosage: TABS
  6. EFFEXOR XR [Concomitant]
  7. LISINOPRIL AND HYDROCHLOROTHIAZIDE [Concomitant]
     Dosage: 20-12.5 MG TABS
     Route: 048
  8. CALCIUM W/VITAMIN D [Concomitant]
     Dosage: TABS
     Route: 048
  9. NORVASC [Concomitant]
     Dosage: TABS
  10. LORCET-HD [Concomitant]
     Indication: PAIN
     Dosage: 10/650 MGTABS
  11. METHADONE [Concomitant]
     Dosage: TABS
     Route: 048
  12. LYRICA [Concomitant]
     Route: 048
  13. DETROL [Concomitant]
     Route: 048
  14. COLACE [Concomitant]
     Route: 048
  15. RESTASIS [Concomitant]
     Route: 065
  16. AMITIZA [Concomitant]
     Route: 048
  17. ALBUTEROL SULFATE [Concomitant]
     Dosage: 2 PUFFS AS NEEDED
     Route: 065
  18. PROMETHAZINE [Concomitant]
     Indication: NAUSEA
     Dosage: HALF TO ONE TABS
  19. FLONASE [Concomitant]
     Dosage: TWO SPRAYS EACH NOSTRIL
     Route: 065
  20. REFRESH TEARS [Concomitant]
     Route: 065
  21. ZYRTEC [Concomitant]
     Dosage: TABS
     Route: 065
  22. ROBAXIN [Concomitant]
     Dosage: TABS
     Route: 048
  23. PLETAL [Concomitant]
     Dosage: TABS
     Route: 048
  24. BONIVA [Concomitant]
     Dosage: TABS
     Route: 048
  25. ATIVAN [Concomitant]
     Indication: ANXIETY
     Dosage: TABS AS NEEDED
     Route: 048
  26. ATIVAN [Concomitant]
     Indication: TREMOR
     Dosage: TABS AS NEEDED
     Route: 048
  27. AMBIEN [Concomitant]
     Indication: SLEEP DISORDER
     Dosage: TABS AS NEEDED
     Route: 048
  28. LIDODERM [Concomitant]
     Indication: BACK PAIN
     Dosage: TABS AS NEEDED
     Route: 065
  29. SINGULAIR [Concomitant]
     Dosage: TABS
     Route: 048
  30. FELDENE [Concomitant]
     Dosage: WITH FOOD
     Route: 048
  31. LASIX [Concomitant]
     Dosage: TABS
     Route: 048
  32. K DUR [Concomitant]
     Dosage: TABS
     Route: 048
  33. DUONEB [Concomitant]
     Dosage: AS NEEDED
     Route: 065
  34. OXYGEN [Concomitant]
     Route: 065
  35. PRAVACHOL [Concomitant]
     Dosage: TABS
     Route: 048
  36. KEFLEX [Concomitant]
     Dosage: TABS
     Route: 048
  37. GLUCOPHAGE [Concomitant]
     Route: 048
  38. FREESTYLE LITE STRIP [Concomitant]

REACTIONS (5)
  - BLOOD CREATINE PHOSPHOKINASE INCREASED [None]
  - CHRONIC OBSTRUCTIVE PULMONARY DISEASE [None]
  - FIBROMYALGIA [None]
  - PNEUMONIA [None]
  - RHABDOMYOLYSIS [None]
